FAERS Safety Report 7298826-2 (Version None)
Quarter: 2011Q1

REPORT INFORMATION
  Report Type: 
  Country: None (occurrence: None)
  Receive Date: 20110217
  Receipt Date: 20110209
  Transmission Date: 20110831
  Serious: Yes (Hospitalization, Disabling)
  Sender: FDA-Public Use
  Company Number: US-ROCHE-757928

PATIENT
  Sex: Female
  Weight: 69.9 kg

DRUGS (3)
  1. ACTEMRA [Suspect]
     Dosage: OTHER INDICATION: RHEUMATOID ARTHRITIS, DOSE: ^280^
     Route: 042
  2. PREDNISONE [Concomitant]
     Indication: RHEUMATOID ARTHRITIS
     Dosage: START DATE: YEARS, OTHER INDICATION:STILL'S DISEASE
     Route: 048
  3. METHOTREXATE [Concomitant]
     Indication: RHEUMATOID ARTHRITIS
     Dosage: START DATE: YEARS, OTHER INDICATION:STILL'S DISEASE
     Route: 058

REACTIONS (5)
  - PORTAL VEIN THROMBOSIS [None]
  - ACUTE RIGHT VENTRICULAR FAILURE [None]
  - PULMONARY HYPERTENSION [None]
  - VENTRICULAR TACHYCARDIA [None]
  - MESENTERIC ARTERY THROMBOSIS [None]
